FAERS Safety Report 8413554-5 (Version None)
Quarter: 2012Q2

REPORT INFORMATION
  Report Type: 
  Country: None (occurrence: None)
  Receive Date: 20120605
  Receipt Date: 20120523
  Transmission Date: 20120825
  Serious: Yes (Other)
  Sender: FDA-Public Use
  Company Number: FR-GLAXOSMITHKLINE-B0803193A

PATIENT
  Sex: Female

DRUGS (8)
  1. HALDOL [Concomitant]
     Route: 065
  2. DEDROGYL [Concomitant]
     Route: 065
  3. GAVISCON [Concomitant]
     Route: 065
  4. AMLODIPINE BESYLATE [Concomitant]
     Route: 065
  5. MOVIPREP [Concomitant]
     Route: 065
  6. IMOVANE [Concomitant]
     Route: 065
  7. ARIXTRA [Suspect]
     Indication: THROMBOSIS PROPHYLAXIS
     Dosage: 2.5MG PER DAY
     Route: 058
     Dates: start: 20111205, end: 20120404
  8. STABLON [Concomitant]
     Route: 065
     Dates: start: 20111205

REACTIONS (4)
  - DRUG ERUPTION [None]
  - INCORRECT DRUG ADMINISTRATION DURATION [None]
  - TOXIC SKIN ERUPTION [None]
  - ERYTHEMA [None]
